FAERS Safety Report 6566074-7 (Version None)
Quarter: 2010Q1

REPORT INFORMATION
  Report Type: 
  Country: None (occurrence: None)
  Receive Date: 20100202
  Receipt Date: 20100125
  Transmission Date: 20100710
  Serious: Yes (Hospitalization)
  Sender: FDA-Public Use
  Company Number: US-RANBAXY-2010RR-30721

PATIENT
  Age: 54 Year
  Sex: Male

DRUGS (4)
  1. GABAPENTIN [Suspect]
     Indication: NEURALGIA
     Dosage: 300 MG, UNK
     Route: 048
     Dates: start: 20030101
  2. GABAPENTIN [Suspect]
     Dosage: 600 MG, UNK
     Route: 048
  3. TRAZODONE [Suspect]
  4. HYDROCODONE BITARTRATE AND ACETAMINOPHEN [Suspect]

REACTIONS (2)
  - DRUG TOXICITY [None]
  - ENCEPHALOPATHY [None]
